FAERS Safety Report 13617870 (Version 1)
Quarter: 2017Q2

REPORT INFORMATION
  Report Type: Spontaneous
  Country: US (occurrence: US)
  Receive Date: 20170606
  Receipt Date: 20170606
  Transmission Date: 20170830
  Serious: No
  Sender: FDA-Public Use
  Company Number: US-TARO-2017TAR00170

PATIENT
  Age: 2 Year
  Sex: Female

DRUGS (1)
  1. FEVERALL CHILDRENS [Suspect]
     Active Substance: ACETAMINOPHEN
     Indication: PYREXIA
     Dosage: UNK, TWICE
     Route: 054
     Dates: start: 20170312

REACTIONS (3)
  - Abnormal faeces [Not Recovered/Not Resolved]
  - Drug administered to patient of inappropriate age [Unknown]
  - Diarrhoea [Not Recovered/Not Resolved]

NARRATIVE: CASE EVENT DATE: 20170312
